FAERS Safety Report 16858317 (Version 2)
Quarter: 2024Q4

REPORT INFORMATION
  Report Type: Report from Study
  Country: US (occurrence: US)
  Receive Date: 20190926
  Receipt Date: 20241213
  Transmission Date: 20250115
  Serious: Yes (Hospitalization, Other)
  Sender: TAKEDA
  Company Number: US-BAXALTA-2016BLT007483

PATIENT
  Age: 73 Year
  Sex: Female
  Weight: 83 kg

DRUGS (18)
  1. SUSOCTOCOG ALFA [Suspect]
     Active Substance: SUSOCTOCOG ALFA
     Indication: Acquired haemophilia
     Dosage: 203 INTERNATIONAL UNIT/KILOGRAM
     Dates: start: 20151111, end: 20151111
  2. SUSOCTOCOG ALFA [Suspect]
     Active Substance: SUSOCTOCOG ALFA
     Dosage: 49.2 INTERNATIONAL UNIT/KILOGRAM
     Dates: start: 20151112, end: 20151112
  3. SUSOCTOCOG ALFA [Suspect]
     Active Substance: SUSOCTOCOG ALFA
     Dosage: 59.3 INTERNATIONAL UNIT/KILOGRAM
     Dates: start: 20151120, end: 20151120
  4. SUSOCTOCOG ALFA [Suspect]
     Active Substance: SUSOCTOCOG ALFA
     Dosage: 39.5 INTERNATIONAL UNIT/KILOGRAM
     Dates: start: 20151120, end: 20151120
  5. SUSOCTOCOG ALFA [Suspect]
     Active Substance: SUSOCTOCOG ALFA
     Dosage: 98.7 INTERNATIONAL UNIT/KILOGRAM
     Dates: start: 20151122, end: 20151122
  6. SUSOCTOCOG ALFA [Suspect]
     Active Substance: SUSOCTOCOG ALFA
     Dosage: 98.7 INTERNATIONAL UNIT/KILOGRAM
     Dates: start: 20151124, end: 20151124
  7. SUSOCTOCOG ALFA [Suspect]
     Active Substance: SUSOCTOCOG ALFA
     Dosage: 43.05 INTERNATIONAL UNIT/KILOGRAM
     Dates: start: 20151127, end: 20151127
  8. SUSOCTOCOG ALFA [Suspect]
     Active Substance: SUSOCTOCOG ALFA
     Dosage: 39.5 INTERNATIONAL UNIT/KILOGRAM
     Dates: start: 20151201, end: 20151201
  9. RITUXIMAB [Concomitant]
     Active Substance: RITUXIMAB
     Dosage: UNK
  10. TYLENOL [Concomitant]
     Active Substance: ACETAMINOPHEN
     Dosage: UNK
  11. ALENDRONATE [Concomitant]
     Active Substance: ALENDRONATE SODIUM
     Dosage: UNK
  12. CALCIUM CARBONATE\VITAMIN D [Concomitant]
     Active Substance: CALCIUM CARBONATE\VITAMIN D
     Dosage: UNK
  13. BENADRYL [Concomitant]
     Active Substance: DIPHENHYDRAMINE HYDROCHLORIDE
     Dosage: UNK
  14. MAGNESIUM HYDROXIDE [Concomitant]
     Active Substance: MAGNESIUM HYDROXIDE
     Dosage: UNK
  15. METHYLPREDNISOLONE [Concomitant]
     Active Substance: METHYLPREDNISOLONE
     Dosage: UNK
  16. ZOFRAN [Concomitant]
     Active Substance: ONDANSETRON HYDROCHLORIDE
     Dosage: UNK
  17. ATORVASTATIN [Concomitant]
     Active Substance: ATORVASTATIN
     Dosage: UNK
  18. BENZONATATE [Concomitant]
     Active Substance: BENZONATATE
     Dosage: UNK

REACTIONS (1)
  - Haemorrhage [Recovered/Resolved]

NARRATIVE: CASE EVENT DATE: 20151120
